FAERS Safety Report 7529028-X (Version None)
Quarter: 2011Q2

REPORT INFORMATION
  Report Type: 
  Country: None (occurrence: None)
  Receive Date: 20110607
  Receipt Date: 20110527
  Transmission Date: 20111010
  Serious: Yes (Life-Threatening, Hospitalization)
  Sender: FDA-Public Use
  Company Number: JP-AMGEN-JPNCT2011026721

PATIENT
  Age: 58 Year
  Sex: Female
  Weight: 40 kg

DRUGS (10)
  1. PROGRAF [Suspect]
     Dosage: 1.5 MG, 1X/DAY
     Dates: start: 20080814, end: 20080910
  2. ETANERCEPT [Suspect]
     Indication: RHEUMATOID ARTHRITIS
     Dosage: 25 MG, 2 TIMES/WK
     Route: 058
     Dates: start: 20080214, end: 20080814
  3. ETANERCEPT [Suspect]
     Dosage: 25 MG, 2 TIMES/WK
     Route: 058
     Dates: start: 20080901, end: 20100224
  4. NEUROTROPIN                        /01024301/ [Concomitant]
     Indication: RHEUMATOID ARTHRITIS
     Dosage: UNK
  5. ETANERCEPT [Suspect]
     Dosage: 25 MG, 2 TIMES/WK
     Route: 058
     Dates: start: 20080818, end: 20080828
  6. PROGRAF [Suspect]
     Dosage: 3 MG, 1X/DAY
     Dates: start: 20080911
  7. ISONIAZID [Concomitant]
     Dosage: UNK
     Dates: start: 20080117
  8. VOLTAREN [Concomitant]
     Indication: RHEUMATOID ARTHRITIS
     Dosage: UNK
     Route: 062
  9. GASTER                             /00706001/ [Concomitant]
     Indication: PROPHYLAXIS
     Dosage: UNK
  10. ETANERCEPT [Suspect]
     Dosage: 25 MG, QWK
     Route: 058
     Dates: start: 20100225

REACTIONS (1)
  - THYROID CANCER [None]
